FAERS Safety Report 6442954-8 (Version None)
Quarter: 2009Q4

REPORT INFORMATION
  Report Type: 
  Country: None (occurrence: None)
  Receive Date: 20091117
  Receipt Date: 20091105
  Transmission Date: 20100525
  Serious: Yes (Other)
  Sender: FDA-Public Use
  Company Number: JP-PFIZER INC-2009295250

PATIENT

DRUGS (1)
  1. ZYVOX [Suspect]
     Dosage: 600 MG, 1X/DAY
     Route: 042
     Dates: start: 20091028, end: 20091029

REACTIONS (2)
  - DELIRIUM [None]
  - PLATELET COUNT DECREASED [None]
